FAERS Safety Report 9440453 (Version 1)
Quarter: 2013Q3

REPORT INFORMATION
  Report Type: Spontaneous
  Country: GB (occurrence: GB)
  Receive Date: 20130805
  Receipt Date: 20130805
  Transmission Date: 20140515
  Serious: Yes (Other)
  Sender: FDA-Public Use
  Company Number: PHHY2013GB080479

PATIENT
  Age: 71 Year
  Sex: Male
  Weight: 94 kg

DRUGS (5)
  1. PIOGLITAZONE [Suspect]
     Indication: DIABETES MELLITUS
     Route: 048
     Dates: start: 20100705
  2. SIMVASTATIN [Concomitant]
  3. LISINOPRIL [Concomitant]
  4. CLOPIDOGREL [Concomitant]
  5. SILDENAFIL [Concomitant]

REACTIONS (3)
  - Herpes zoster [Recovered/Resolved with Sequelae]
  - Blister [Unknown]
  - Varicella [Unknown]
